FAERS Safety Report 8394600-4 (Version None)
Quarter: 2012Q2

REPORT INFORMATION
  Report Type: 
  Country: None (occurrence: None)
  Receive Date: 20120530
  Receipt Date: 20120524
  Transmission Date: 20120825
  Serious: No
  Sender: FDA-Public Use
  Company Number: US-BAYER-2012-051903

PATIENT
  Age: 49 Year
  Sex: Male

DRUGS (1)
  1. MAGNEVIST [Suspect]
     Indication: NUCLEAR MAGNETIC RESONANCE IMAGING
     Dosage: 17 ML, ONCE
     Route: 042
     Dates: start: 20120522, end: 20120522

REACTIONS (2)
  - NAUSEA [None]
  - HYPERHIDROSIS [None]
